FAERS Safety Report 20648240 (Version 1)
Quarter: 2022Q1

REPORT INFORMATION
  Report Type: Spontaneous
  Country: US (occurrence: None)
  Receive Date: 20220328
  Receipt Date: 20220328
  Transmission Date: 20220423
  Serious: No
  Sender: FDA-Public Use
  Company Number: None

PATIENT
  Age: 28 Year
  Sex: Female
  Weight: 63 kg

DRUGS (2)
  1. LAMOTRIGINE [Suspect]
     Active Substance: LAMOTRIGINE
     Indication: Depression
     Dosage: FREQUENCY : AT BEDTIME;?
     Route: 048
     Dates: start: 20220320, end: 20220324
  2. LEVOMEFOLIC ACID [Concomitant]
     Active Substance: LEVOMEFOLIC ACID

REACTIONS (6)
  - Product substitution issue [None]
  - Abdominal pain upper [None]
  - Diarrhoea [None]
  - Feeling jittery [None]
  - Agitation [None]
  - Suspected product quality issue [None]

NARRATIVE: CASE EVENT DATE: 20220321
